FAERS Safety Report 5206778-1 (Version None)
Quarter: 2006Q4

REPORT INFORMATION
  Report Type: 
  Country: None (occurrence: None)
  Receive Date: 20061031
  Receipt Date: 20060814
  Transmission Date: 20070319
  Serious: No
  Sender: FDA-Public Use
  Company Number: APP200600229

PATIENT
  Age: 17 Year
  Sex: Female
  Weight: 56.6996 kg

DRUGS (1)
  1. DEXAMETHASONE [Suspect]
     Indication: INFECTION
     Dosage: ( 8 MG, ONCE ), INTRAMUSCULAR
     Route: 030
     Dates: start: 20060627, end: 20060627

REACTIONS (1)
  - HYPERSENSITIVITY [None]
